FAERS Safety Report 5028146-8 (Version None)
Quarter: 2006Q2

REPORT INFORMATION
  Report Type: 
  Country: None (occurrence: None)
  Receive Date: 20060613
  Receipt Date: 20060601
  Transmission Date: 20061013
  Serious: Yes (Life-Threatening, Hospitalization)
  Sender: FDA-Public Use
  Company Number: 224676

PATIENT
  Age: 65 Year
  Sex: Female
  Weight: 76.7 kg

DRUGS (21)
  1. AVASTIN [Suspect]
     Indication: NEUROENDOCRINE CARCINOMA
     Dosage: 375 MG, Q2W, INTRAVENOUS
     Route: 042
     Dates: start: 20060102, end: 20060426
  2. DEXAMETHASONE [Suspect]
     Indication: NEUROENDOCRINE CARCINOMA
     Dosage: 10 MG, Q2W, INTRAVENOUS
     Route: 042
     Dates: start: 20060102, end: 20060428
  3. ALOXI [Suspect]
     Indication: NEUROENDOCRINE CARCINOMA
     Dosage: 0.25 MG, Q2W, INTRAVENOUS
     Route: 042
     Dates: start: 20060102, end: 20060428
  4. OXALIPLATIN (OXALIPLATIN) [Suspect]
     Indication: NEUROENDOCRINE CARCINOMA
     Dosage: 125 MG, Q2W, INTRAVENOUS
     Route: 042
     Dates: start: 20060102, end: 20060428
  5. LEUCOVORIN CALCIUM [Suspect]
     Indication: NEUROENDOCRINE CARCINOMA
     Dosage: 390 MG, Q2W, INTRAVENOUS
     Route: 042
     Dates: start: 20060102, end: 20060428
  6. FLUOROURACIL [Suspect]
     Indication: NEUROENDOCRINE CARCINOMA
     Dosage: SEE IMAGE
     Route: 042
     Dates: start: 20060102, end: 20060428
  7. FLUOROURACIL [Suspect]
     Indication: NEUROENDOCRINE CARCINOMA
     Dosage: SEE IMAGE
     Route: 042
     Dates: start: 20060102, end: 20060428
  8. VICODIN [Concomitant]
  9. PANCREASE (PANCRELIPASE) [Concomitant]
  10. CELEXA [Concomitant]
  11. COMPAZINE [Concomitant]
  12. ATIVAN [Concomitant]
  13. KYTRIL [Concomitant]
  14. HYDROCHLOROTHIAZIDE [Concomitant]
  15. OXYCONTIN [Concomitant]
  16. PROTONIX [Concomitant]
  17. CARAFATE [Concomitant]
  18. NORVASC [Concomitant]
  19. LINOLEIC ACID (LINOLEIC ACID) [Concomitant]
  20. GUARANA (CAFFEINE) [Concomitant]
  21. LIPOIC ACID (THIOCTIC ACID) [Concomitant]

REACTIONS (11)
  - ABDOMINAL PAIN [None]
  - AORTIC DISORDER [None]
  - AORTIC DISSECTION [None]
  - AORTIC THROMBOSIS [None]
  - BACK PAIN [None]
  - CHEST PAIN [None]
  - DYSPNOEA [None]
  - HAEMATOMA [None]
  - JEJUNAL ULCER [None]
  - ULCER [None]
  - VOMITING [None]
